FAERS Safety Report 25764109 (Version 1)
Quarter: 2025Q3

REPORT INFORMATION
  Report Type: Spontaneous
  Country: US (occurrence: US)
  Receive Date: 20250905
  Receipt Date: 20250905
  Transmission Date: 20251021
  Serious: No
  Sender: ELI LILLY AND COMPANY
  Company Number: US-ELI_LILLY_AND_COMPANY-US202508029678

PATIENT
  Age: 24 Year

DRUGS (2)
  1. OLUMIANT [Interacting]
     Active Substance: BARICITINIB
     Indication: Product used for unknown indication
     Route: 065
  2. MEASLES-MUMPS-RUBELLA VIRUS VACCINE [Interacting]
     Active Substance: MEASLES-MUMPS-RUBELLA VIRUS VACCINE
     Indication: Product used for unknown indication
     Route: 065

REACTIONS (1)
  - Drug interaction [Unknown]

NARRATIVE: CASE EVENT DATE: 20250828
